FAERS Safety Report 21942040 (Version 2)
Quarter: 2023Q1

REPORT INFORMATION
  Report Type: Spontaneous
  Country: DE (occurrence: None)
  Receive Date: 20230202
  Receipt Date: 20230208
  Transmission Date: 20230418
  Serious: Yes (Other)
  Sender: FDA-Public Use
  Company Number: 2023A023461

PATIENT
  Age: 891 Month
  Sex: Male
  Weight: 75 kg

DRUGS (1)
  1. XIGDUO XR [Suspect]
     Active Substance: DAPAGLIFLOZIN PROPANEDIOL\METFORMIN HYDROCHLORIDE
     Indication: Type 2 diabetes mellitus
     Dosage: 5 / 850MG, TWO TIMES A DAY
     Route: 048
     Dates: start: 2020, end: 202212

REACTIONS (6)
  - Circulatory collapse [Recovered/Resolved]
  - Vomiting [Recovered/Resolved]
  - Nausea [Recovered/Resolved]
  - Weight decreased [Unknown]
  - Blood creatinine increased [Unknown]
  - Hypotension [Unknown]

NARRATIVE: CASE EVENT DATE: 20221101
